FAERS Safety Report 20745804 (Version 2)
Quarter: 2022Q2

REPORT INFORMATION
  Report Type: Report from Study
  Country: GB (occurrence: GB)
  Receive Date: 20220425
  Receipt Date: 20220427
  Transmission Date: 20220721
  Serious: Yes (Hospitalization, Disabling)
  Sender: FDA-Public Use
  Company Number: GB-NOVARTISPH-NVSC2022GB089476

PATIENT
  Age: 6 Month
  Sex: Male

DRUGS (1)
  1. ZOLGENSMA [Suspect]
     Active Substance: ONASEMNOGENE ABEPARVOVEC-XIOI
     Indication: Spinal muscular atrophy
     Dosage: UNK UNK, ONCE/SINGLE
     Route: 042
     Dates: start: 20211124, end: 20211124

REACTIONS (10)
  - Gastroenteritis viral [Unknown]
  - Body temperature increased [Unknown]
  - Food intolerance [Unknown]
  - Gastric disorder [Unknown]
  - Drug ineffective [Unknown]
  - Product contamination [Unknown]
  - Crying [Unknown]
  - Respiratory disorder [Unknown]
  - General physical health deterioration [Unknown]
  - Dysphagia [Unknown]

NARRATIVE: CASE EVENT DATE: 20211101
